FAERS Safety Report 8497662 (Version 34)
Quarter: 2021Q2

REPORT INFORMATION
  Report Type: Other
  Country: CA (occurrence: CA)
  Receive Date: 20120406
  Receipt Date: 20210527
  Transmission Date: 20210717
  Serious: Yes (Hospitalization, Other)
  Sender: FDA-Public Use
  Company Number: CA-ROCHE-1052543

PATIENT
  Age: 67 Year
  Sex: Female
  Weight: 69.9 kg

DRUGS (38)
  1. ACTEMRA [Suspect]
     Active Substance: TOCILIZUMAB
     Indication: RHEUMATOID ARTHRITIS
     Dosage: DAY 1 AND 15, WITH RETREATMENTS
     Route: 042
     Dates: start: 20111117, end: 20120711
  2. RITUXAN [Suspect]
     Active Substance: RITUXIMAB
     Route: 042
     Dates: start: 20190913
  3. RITUXAN [Suspect]
     Active Substance: RITUXIMAB
     Dosage: TWO INFUSIONS 1 MONTH APART
     Route: 042
     Dates: start: 20180126
  4. CELEBREX [Suspect]
     Active Substance: CELECOXIB
     Indication: BACK PAIN
     Route: 065
  5. PREDNISONE. [Suspect]
     Active Substance: PREDNISONE
     Indication: BACK PAIN
     Route: 065
  6. RISEDRONATE [Concomitant]
     Active Substance: RISEDRONATE SODIUM
  7. CALCIUM [Concomitant]
     Active Substance: CALCIUM
     Indication: PRODUCT USED FOR UNKNOWN INDICATION
  8. SULFASALAZINE. [Concomitant]
     Active Substance: SULFASALAZINE
  9. PLAQUENIL [Concomitant]
     Active Substance: HYDROXYCHLOROQUINE SULFATE
  10. WINPRED [Concomitant]
     Active Substance: PREDNISONE
  11. RITUXAN [Suspect]
     Active Substance: RITUXIMAB
     Route: 042
     Dates: start: 20150407
  12. RITUXAN [Suspect]
     Active Substance: RITUXIMAB
     Route: 042
     Dates: start: 20151103
  13. RITUXAN [Suspect]
     Active Substance: RITUXIMAB
     Route: 042
     Dates: start: 20180222
  14. RITUXAN [Suspect]
     Active Substance: RITUXIMAB
     Route: 042
     Dates: start: 20170706, end: 20191025
  15. DIPHENHYDRAMINE HCL [Concomitant]
     Active Substance: DIPHENHYDRAMINE HYDROCHLORIDE
     Indication: PREMEDICATION
     Route: 048
     Dates: start: 20130819
  16. TYLENOL [Concomitant]
     Active Substance: ACETAMINOPHEN
  17. HYDROXYCHLOROQUINE [Concomitant]
     Active Substance: HYDROXYCHLOROQUINE
  18. ACTEMRA [Suspect]
     Active Substance: TOCILIZUMAB
     Dosage: ONGOING; SINGLE INFUSION (DAY 1 ONLY)
     Route: 042
     Dates: start: 20200709
  19. RITUXAN [Suspect]
     Active Substance: RITUXIMAB
     Indication: RHEUMATOID ARTHRITIS
     Dosage: DAY 1 AND DAY 15; ONGOING
     Route: 042
     Dates: start: 20130819, end: 20140504
  20. RITUXAN [Suspect]
     Active Substance: RITUXIMAB
     Route: 042
     Dates: start: 20150505
  21. PANTOLOC [Concomitant]
     Active Substance: PANTOPRAZOLE SODIUM
  22. MICARDIS [Concomitant]
     Active Substance: TELMISARTAN
  23. IMURAN [Concomitant]
     Active Substance: AZATHIOPRINE
     Dates: start: 20130823
  24. BENADRYL [Concomitant]
     Active Substance: DIPHENHYDRAMINE HYDROCHLORIDE
     Route: 048
     Dates: start: 20130819
  25. NAPROXEN. [Concomitant]
     Active Substance: NAPROXEN
  26. RITUXAN [Suspect]
     Active Substance: RITUXIMAB
     Route: 042
     Dates: start: 20190326
  27. ACETAMINOPHEN. [Concomitant]
     Active Substance: ACETAMINOPHEN
     Route: 048
     Dates: start: 20200423
  28. METHYLPREDNISOLONE. [Concomitant]
     Active Substance: METHYLPREDNISOLONE
     Indication: PREMEDICATION
     Route: 042
     Dates: start: 20130819
  29. ACTEMRA [Suspect]
     Active Substance: TOCILIZUMAB
     Dosage: TWO INFUSIONS 1 MONTH APART, PLUS RETREATMENTS
     Route: 042
     Dates: start: 20180126, end: 20200423
  30. ARAVA [Suspect]
     Active Substance: LEFLUNOMIDE
     Indication: RHEUMATOID ARTHRITIS
     Route: 065
  31. FOLIC ACID. [Concomitant]
     Active Substance: FOLIC ACID
     Indication: PRODUCT USED FOR UNKNOWN INDICATION
  32. ZOPICLONE [Concomitant]
     Active Substance: ZOPICLONE
  33. SULFATRIM [Concomitant]
     Active Substance: SULFAMETHOXAZOLE\TRIMETHOPRIM
  34. ACTEMRA [Suspect]
     Active Substance: TOCILIZUMAB
     Dosage: DOSE DECREASED
     Route: 042
     Dates: start: 20120921
  35. RITUXAN [Suspect]
     Active Substance: RITUXIMAB
     Route: 042
     Dates: start: 20140908, end: 20151103
  36. RITUXAN [Suspect]
     Active Substance: RITUXIMAB
     Route: 042
     Dates: start: 20200228
  37. ACETAMINOPHEN. [Concomitant]
     Active Substance: ACETAMINOPHEN
     Indication: PRODUCT USED FOR UNKNOWN INDICATION
     Route: 048
     Dates: start: 20130819, end: 20200228
  38. AMLODIPINE [Concomitant]
     Active Substance: AMLODIPINE BESYLATE
     Indication: PRODUCT USED FOR UNKNOWN INDICATION

REACTIONS (32)
  - Pneumocystis jirovecii pneumonia [Unknown]
  - Tooth infection [Recovered/Resolved]
  - Full blood count abnormal [Not Recovered/Not Resolved]
  - Fatigue [Recovering/Resolving]
  - Peripheral swelling [Not Recovered/Not Resolved]
  - Contusion [Not Recovered/Not Resolved]
  - Insomnia [Unknown]
  - Blood pressure systolic increased [Unknown]
  - Hypertension [Not Recovered/Not Resolved]
  - Upper respiratory tract infection [Unknown]
  - Treatment failure [Not Recovered/Not Resolved]
  - Pain [Not Recovered/Not Resolved]
  - Blister [Recovered/Resolved]
  - Oxygen saturation decreased [Unknown]
  - Blood pressure diastolic decreased [Unknown]
  - Blood pressure diastolic abnormal [Unknown]
  - Blood pressure increased [Unknown]
  - Infusion related reaction [Unknown]
  - Nasopharyngitis [Unknown]
  - Pyrexia [Unknown]
  - Off label use [Unknown]
  - Somnolence [Unknown]
  - Gastrointestinal carcinoma [Unknown]
  - Diarrhoea [Recovering/Resolving]
  - Diarrhoea [Unknown]
  - Colitis ulcerative [Unknown]
  - Swelling [Unknown]
  - Blood pressure increased [Unknown]
  - Blood pressure systolic abnormal [Unknown]
  - Osteonecrosis [Recovering/Resolving]
  - Heart rate decreased [Unknown]
  - Abdominal pain [Recovered/Resolved]

NARRATIVE: CASE EVENT DATE: 20120120
